FAERS Safety Report 10924188 (Version 1)
Quarter: 2015Q1

REPORT INFORMATION
  Report Type: Spontaneous
  Country: US (occurrence: None)
  Receive Date: 20150129
  Receipt Date: 20150129
  Transmission Date: 20150721
  Serious: Yes (Hospitalization)
  Sender: FDA-Public Use
  Company Number: 106964U

PATIENT
  Age: 36 Year
  Sex: Female
  Weight: 82 kg

DRUGS (5)
  1. DILANTIN (PHENYTOIN SODIUM) [Concomitant]
     Active Substance: PHENYTOIN SODIUM
     Dates: start: 201311
  2. PHENOBARBITOL (PHENOBARBITAL) [Concomitant]
  3. DEPAKOTE [Concomitant]
     Active Substance: DIVALPROEX SODIUM
  4. KEPPRA [Suspect]
     Active Substance: LEVETIRACETAM
     Indication: SEIZURE
     Dosage: 500MG IN AM AND 750MG AT NIGHT BEGINNING, ORAL
     Route: 048
     Dates: start: 20130717, end: 201311
  5. KEPPRA [Suspect]
     Active Substance: LEVETIRACETAM
     Indication: STURGE-WEBER SYNDROME
     Dosage: 500MG IN AM AND 750MG AT NIGHT BEGINNING, ORAL
     Route: 048
     Dates: start: 20130717, end: 201311

REACTIONS (2)
  - Partial seizures [None]
  - Complex partial seizures [None]

NARRATIVE: CASE EVENT DATE: 20131120
